FAERS Safety Report 5516501-9 (Version None)
Quarter: 2007Q4

REPORT INFORMATION
  Report Type: 
  Country: None (occurrence: None)
  Receive Date: 20071114
  Receipt Date: 20070307
  Transmission Date: 20080405
  Serious: No
  Sender: FDA-Public Use
  Company Number: A0642023A

PATIENT
  Age: 36 Year
  Sex: Male

DRUGS (1)
  1. COMMIT [Suspect]
     Dates: end: 20070304

REACTIONS (2)
  - DYSPHAGIA [None]
  - THROAT IRRITATION [None]
